FAERS Safety Report 9003956 (Version 4)
Quarter: 2013Q1

REPORT INFORMATION
  Report Type: Spontaneous
  Country: US (occurrence: US)
  Receive Date: 20130109
  Receipt Date: 20130220
  Transmission Date: 20140127
  Serious: Yes (Hospitalization)
  Sender: FDA-Public Use
  Company Number: US-AMGEN-USASP2013000747

PATIENT
  Age: 58 Year
  Sex: Male
  Weight: 94.2 kg

DRUGS (5)
  1. ENBREL [Suspect]
     Indication: RHEUMATOID ARTHRITIS
     Dosage: 50 MG, WEEKLY
     Route: 058
     Dates: start: 20120915
  2. METHOTREXATE [Concomitant]
     Indication: RHEUMATOID ARTHRITIS
     Dosage: 25 MG, QWK
     Route: 048
     Dates: start: 20111005
  3. MELOXICAM [Concomitant]
     Indication: RHEUMATOID ARTHRITIS
     Dosage: 15 MG, QD
     Route: 048
     Dates: start: 20111005
  4. ARAVA [Concomitant]
     Indication: RHEUMATOID ARTHRITIS
     Dosage: 20 MG, QD
     Route: 048
     Dates: start: 20111005
  5. PREDNISONE [Concomitant]
     Dosage: 20 MG, QD FOR 1 WEEK THEN DECREASE TO 10 MG DAILY
     Route: 048
     Dates: start: 20121217

REACTIONS (26)
  - Oedema peripheral [Recovered/Resolved]
  - Local swelling [Not Recovered/Not Resolved]
  - Joint swelling [Recovered/Resolved]
  - Excoriation [Not Recovered/Not Resolved]
  - Condition aggravated [Unknown]
  - Cellulitis [Unknown]
  - Scratch [Recovered/Resolved]
  - Animal scratch [Recovered/Resolved]
  - Musculoskeletal pain [Recovered/Resolved]
  - Synovitis [Unknown]
  - Tenosynovitis [Unknown]
  - Arthritis [Unknown]
  - Arthralgia [Unknown]
  - Injection site extravasation [Unknown]
  - Sensory loss [Unknown]
  - Back pain [Unknown]
  - Sleep disorder [Unknown]
  - Folliculitis [Unknown]
  - Fall [Unknown]
  - Fatigue [Unknown]
  - Immune system disorder [Unknown]
  - Lipoma [Unknown]
  - Injection site mass [Not Recovered/Not Resolved]
  - Sinusitis [Unknown]
  - Injection site haemorrhage [Not Recovered/Not Resolved]
  - Injection site pain [Not Recovered/Not Resolved]
